FAERS Safety Report 8116920-0 (Version None)
Quarter: 2012Q1

REPORT INFORMATION
  Report Type: 
  Country: None (occurrence: None)
  Receive Date: 20120206
  Receipt Date: 20120127
  Transmission Date: 20120608
  Serious: Yes (Other)
  Sender: FDA-Public Use
  Company Number: ES-ABBOTT-10P-144-0656722-00

PATIENT
  Age: 60 Year
  Sex: Female

DRUGS (4)
  1. ADALIMUMAB [Suspect]
     Indication: RHEUMATOID ARTHRITIS
     Route: 058
     Dates: start: 20041228, end: 20080919
  2. INDOMETACINA [Concomitant]
     Indication: RHEUMATOID ARTHRITIS
  3. METHOTREXATE [Concomitant]
     Indication: RHEUMATOID ARTHRITIS
  4. METHYLPREDNISOLONE [Concomitant]
     Indication: RHEUMATOID ARTHRITIS

REACTIONS (2)
  - NERVOUS SYSTEM DISORDER [None]
  - PERIPHERAL MOTOR NEUROPATHY [None]
